FAERS Safety Report 19756001 (Version 2)
Quarter: 2021Q3

REPORT INFORMATION
  Report Type: Spontaneous
  Country: NL (occurrence: NL)
  Receive Date: 20210827
  Receipt Date: 20210913
  Transmission Date: 20211014
  Serious: Yes (Life-Threatening, Hospitalization, Other)
  Sender: FDA-Public Use
  Company Number: NL-MYLANLABS-2021M1055711

PATIENT
  Age: 59 Year
  Sex: Male

DRUGS (25)
  1. RITUXIMAB. [Suspect]
     Active Substance: RITUXIMAB
     Indication: ABDOMINAL LYMPHADENOPATHY
  2. PREDNISONE. [Suspect]
     Active Substance: PREDNISONE
     Indication: AUTOIMMUNE HAEMOLYTIC ANAEMIA
     Dosage: THREE CYCLES
     Dates: start: 2017
  3. PREDNISONE. [Suspect]
     Active Substance: PREDNISONE
     Indication: ABDOMINAL LYMPHADENOPATHY
  4. CYCLOPHOSPHAMIDE. [Suspect]
     Active Substance: CYCLOPHOSPHAMIDE
     Indication: FOLLICULAR LYMPHOMA
     Dosage: 750 MILLIGRAM/SQ. METER (CYCLIC (8 CYCLES (DAY 1))
     Route: 042
  5. RITUXIMAB. [Suspect]
     Active Substance: RITUXIMAB
     Indication: LYMPHADENOPATHY MEDIASTINAL
  6. PREDNISONE. [Suspect]
     Active Substance: PREDNISONE
     Indication: LYMPHADENOPATHY MEDIASTINAL
  7. VINCRISTINE                        /00078802/ [Suspect]
     Active Substance: VINCRISTINE
     Indication: ABDOMINAL LYMPHADENOPATHY
  8. VINCRISTINE                        /00078802/ [Suspect]
     Active Substance: VINCRISTINE
     Indication: LYMPHADENOPATHY MEDIASTINAL
  9. TRIMETHOPRIM SULFAMETHOXAZOLE [Concomitant]
     Active Substance: SULFAMETHOXAZOLE\TRIMETHOPRIM
     Indication: PROPHYLAXIS
     Dosage: 480 MILLIGRAM, QD (480 MG, QD)
     Route: 048
     Dates: start: 2017
  10. PREDNISONE. [Suspect]
     Active Substance: PREDNISONE
     Indication: BONE MARROW INFILTRATION
     Dosage: 40 MILLIGRAM/SQ. METER, CYCLE (40 MG/M2; DAY 1?5; EIGHT CYCLES)
     Route: 048
     Dates: start: 2008
  11. PREDNISONE. [Suspect]
     Active Substance: PREDNISONE
     Indication: FOLLICULAR LYMPHOMA
     Dosage: 40 MILLIGRAM, QD (40 MG, QD; GRADUALLY TAPERED TO 40 MG DAILY)
     Dates: start: 2019, end: 2019
  12. PREDNISONE. [Suspect]
     Active Substance: PREDNISONE
     Indication: SPLENOMEGALY
     Dosage: 90 MILLIGRAM, QD (90 MG, QD)
     Dates: start: 201903, end: 2019
  13. CYCLOPHOSPHAMIDE. [Suspect]
     Active Substance: CYCLOPHOSPHAMIDE
     Indication: ABDOMINAL LYMPHADENOPATHY
  14. CYCLOPHOSPHAMIDE. [Suspect]
     Active Substance: CYCLOPHOSPHAMIDE
     Indication: LYMPHADENOPATHY MEDIASTINAL
  15. VINCRISTINE                        /00078802/ [Suspect]
     Active Substance: VINCRISTINE
     Indication: LYMPHADENOPATHY
  16. PREDNISONE. [Suspect]
     Active Substance: PREDNISONE
     Indication: SKIN TOXICITY
     Dosage: 1 MILLIGRAM/KILOGRAM, QD (1 MG/KG, QD)
     Route: 048
     Dates: start: 2017
  17. IDELALISIB [Suspect]
     Active Substance: IDELALISIB
     Indication: AUTOIMMUNE HAEMOLYTIC ANAEMIA
     Dosage: 150 MILLIGRAM, BID (150 MG, BID)
     Dates: start: 2017, end: 2017
  18. IDELALISIB [Suspect]
     Active Substance: IDELALISIB
     Dosage: 150 MILLIGRAM, BID (150 MG, BID)
     Dates: start: 201903, end: 201908
  19. VALACICLOVIR [Concomitant]
     Active Substance: VALACYCLOVIR HYDROCHLORIDE
     Indication: PROPHYLAXIS
     Dosage: 500 MILLIGRAM, BID (500 MG, BID)
     Route: 048
     Dates: start: 2017
  20. PREDNISONE. [Suspect]
     Active Substance: PREDNISONE
     Indication: LYMPHADENOPATHY
  21. CYCLOPHOSPHAMIDE. [Suspect]
     Active Substance: CYCLOPHOSPHAMIDE
     Indication: LYMPHADENOPATHY
  22. VINCRISTINE                        /00078802/ [Suspect]
     Active Substance: VINCRISTINE
     Indication: FOLLICULAR LYMPHOMA
     Dosage: 1.4 MILLIGRAM/SQ. METER
  23. RITUXIMAB. [Suspect]
     Active Substance: RITUXIMAB
     Indication: FOLLICULAR LYMPHOMA
     Dosage: 375 MILLIGRAM/SQ. METER (CYCLIC (8 CYCLES (DAY 1))
  24. RITUXIMAB. [Suspect]
     Active Substance: RITUXIMAB
     Indication: LYMPHADENOPATHY
  25. CEFTRIAXONE. [Concomitant]
     Active Substance: CEFTRIAXONE
     Indication: SEPSIS
     Dosage: UNK
     Dates: start: 201907

REACTIONS (14)
  - Malaise [Recovered/Resolved]
  - Disseminated cryptococcosis [Recovered/Resolved]
  - Enterococcal infection [Recovered/Resolved]
  - Fungaemia [Recovered/Resolved]
  - Pyrexia [Recovered/Resolved]
  - Cryptococcosis [Recovered/Resolved]
  - Therapy partial responder [Unknown]
  - Neurocryptococcosis [Recovered/Resolved]
  - Follicular lymphoma [Unknown]
  - Sepsis [Recovered/Resolved]
  - Lymphopenia [Recovering/Resolving]
  - Lymphadenopathy [Unknown]
  - Fatigue [Recovered/Resolved]
  - Pneumonia cryptococcal [Recovered/Resolved]

NARRATIVE: CASE EVENT DATE: 2013
